FAERS Safety Report 7597485-9 (Version None)
Quarter: 2011Q3

REPORT INFORMATION
  Report Type: 
  Country: None (occurrence: None)
  Receive Date: 20110708
  Receipt Date: 20110629
  Transmission Date: 20111222
  Serious: Yes (Other)
  Sender: FDA-Public Use
  Company Number: PHHY2011DE58372

PATIENT
  Age: 68 Year
  Sex: Female

DRUGS (3)
  1. ZOMETA [Suspect]
     Dosage: UNK
     Dates: start: 20050201, end: 20080801
  2. CHEMOTHERAPEUTICS NOS [Concomitant]
  3. CORTISONACETAT [Concomitant]

REACTIONS (1)
  - OSTEONECROSIS OF JAW [None]
